FAERS Safety Report 24339015 (Version 4)
Quarter: 2025Q1

REPORT INFORMATION
  Report Type: Spontaneous
  Country: US (occurrence: US)
  Receive Date: 20240919
  Receipt Date: 20250204
  Transmission Date: 20250408
  Serious: No
  Sender: BRISTOL-MYERS SQUIBB COMPANY
  Company Number: US-BRISTOL-MYERS SQUIBB COMPANY-2024-148166

PATIENT
  Age: 43 Year
  Sex: Female

DRUGS (2)
  1. ZEPOSIA [Suspect]
     Active Substance: OZANIMOD HYDROCHLORIDE
     Indication: Multiple sclerosis
     Route: 048
     Dates: start: 202408
  2. ZEPOSIA [Suspect]
     Active Substance: OZANIMOD HYDROCHLORIDE
     Route: 048
     Dates: start: 202407

REACTIONS (10)
  - Musculoskeletal stiffness [Unknown]
  - Back pain [Unknown]
  - Hypoaesthesia [Unknown]
  - Paraesthesia [Unknown]
  - Synovial cyst [Unknown]
  - Osteoarthritis [Unknown]
  - Gait disturbance [Recovering/Resolving]
  - Lumbar puncture [Unknown]
  - Headache [Unknown]
  - Multiple sclerosis relapse [Unknown]

NARRATIVE: CASE EVENT DATE: 20240701
